FAERS Safety Report 25958093 (Version 3)
Quarter: 2025Q4

REPORT INFORMATION
  Report Type: Spontaneous
  Country: EU (occurrence: EU)
  Receive Date: 20251024
  Receipt Date: 20251112
  Transmission Date: 20260118
  Serious: Yes (Life-Threatening)
  Sender: MERCK SHARP & DOHME LLC
  Company Number: None

PATIENT
  Age: 61 Year
  Sex: Male
  Weight: 58.5 kg

DRUGS (3)
  1. KEYTRUDA [Suspect]
     Active Substance: PEMBROLIZUMAB
     Indication: Squamous cell carcinoma of head and neck
     Route: 042
     Dates: start: 20250821
  2. CARBOPLATIN [Suspect]
     Active Substance: CARBOPLATIN
     Indication: Squamous cell carcinoma of head and neck
     Route: 042
     Dates: start: 20250821
  3. FLUOROURACIL [Suspect]
     Active Substance: FLUOROURACIL
     Indication: Squamous cell carcinoma of head and neck
     Route: 042
     Dates: start: 20250821, end: 20250821

REACTIONS (2)
  - Pancytopenia [Recovering/Resolving]
  - Septic shock [Recovering/Resolving]

NARRATIVE: CASE EVENT DATE: 20250831
